FAERS Safety Report 7784147-8 (Version None)
Quarter: 2011Q3

REPORT INFORMATION
  Report Type: 
  Country: None (occurrence: None)
  Receive Date: 20110928
  Receipt Date: 20110926
  Transmission Date: 20111222
  Serious: Yes (Other)
  Sender: FDA-Public Use
  Company Number: CN-BAYER-2011-090726

PATIENT
  Age: 60 Year
  Sex: Female

DRUGS (1)
  1. AVELOX [Suspect]
     Indication: UPPER RESPIRATORY TRACT INFECTION
     Dosage: 0.4 G, ONCE
     Route: 048
     Dates: start: 20101001

REACTIONS (4)
  - AGITATION [None]
  - DYSPHORIA [None]
  - TACHYCARDIA [None]
  - CARDIOTOXICITY [None]
